FAERS Safety Report 15210636 (Version 2)
Quarter: 2018Q3

REPORT INFORMATION
  Report Type: Report from Study
  Country: CA (occurrence: CA)
  Receive Date: 20180728
  Receipt Date: 20180806
  Transmission Date: 20181010
  Serious: Yes (Other)
  Sender: FDA-Public Use
  Company Number: CA-HLSUS-2018-CA-001120

PATIENT
  Age: 60 Year
  Sex: Male

DRUGS (1)
  1. CLOZARIL [Suspect]
     Active Substance: CLOZAPINE
     Dosage: 600MG ONCE DAILY
     Route: 048
     Dates: start: 20070416

REACTIONS (6)
  - Mitral valve incompetence [Unknown]
  - Pericardial effusion [Unknown]
  - ECG signs of myocardial infarction [Unknown]
  - Coronary artery disease [Unknown]
  - Systolic dysfunction [Unknown]
  - Hypokinesia [Unknown]

NARRATIVE: CASE EVENT DATE: 20180529
